FAERS Safety Report 9462579 (Version 3)
Quarter: 2013Q4

REPORT INFORMATION
  Report Type: Spontaneous
  Country: US (occurrence: US)
  Receive Date: 20130816
  Receipt Date: 20131010
  Transmission Date: 20140711
  Serious: Yes (Other)
  Sender: FDA-Public Use
  Company Number: US-PFIZER INC-2013238270

PATIENT
  Age: 82 Year
  Sex: Female
  Weight: 81.63 kg

DRUGS (10)
  1. LYRICA [Suspect]
     Indication: TRIGEMINAL NEURALGIA
     Dosage: 100 MG, 1 CAP AM, 1 CAP AFTERNOON, 2 CAPS AT NIGHT
     Route: 048
  2. FOSAMAX [Concomitant]
     Dosage: 70 MG, ONCE A WEEK IN THE MORNING.
     Route: 048
  3. TENORMIN [Concomitant]
     Dosage: 25 MG, 1X/DAY
     Route: 048
  4. DITROPAN XL [Concomitant]
     Indication: URINARY INCONTINENCE
     Dosage: 10 MG, 1X/DAY
     Route: 048
  5. MIRAPEX [Concomitant]
     Dosage: 0.25 MG, 2X/DAY
     Route: 048
  6. ASCRIPTIN [Concomitant]
     Dosage: 325 MG, 1X/DAY
     Route: 048
  7. MURO 128 [Concomitant]
     Dosage: UNK (USE AS DIRECTED)
  8. ARISTOCORT [Concomitant]
     Dosage: APPLY TOPICALLY TO AFFECTED AREA(S) 2 TIMES DAILY.
     Route: 061
  9. CALCIUM ANTACID [Concomitant]
     Dosage: 500 MG, 2X/DAY
  10. MULTIVITAMINS [Concomitant]
     Dosage: 1 DF, 1X/DAY
     Route: 048

REACTIONS (4)
  - Corneal disorder [Unknown]
  - Corneal disorder [Unknown]
  - Renal failure chronic [Unknown]
  - Glaucoma [Unknown]
